FAERS Safety Report 7359844-9 (Version None)
Quarter: 2011Q1

REPORT INFORMATION
  Report Type: 
  Country: None (occurrence: None)
  Receive Date: 20110307
  Receipt Date: 20110218
  Transmission Date: 20110831
  Serious: Yes (Hospitalization)
  Sender: FDA-Public Use
  Company Number: AUR-APL-2011-00623

PATIENT
  Age: 24 Year
  Sex: Male

DRUGS (8)
  1. CITALOPRAM HYDROBROMIDE [Suspect]
     Indication: OBSESSIVE-COMPULSIVE DISORDER
     Dosage: 20 MG, ORAL
     Route: 048
     Dates: start: 20110128, end: 20110208
  2. CITALOPRAM HYDROBROMIDE [Suspect]
     Indication: ANXIETY
     Dosage: 20 MG, ORAL
     Route: 048
     Dates: start: 20110128, end: 20110208
  3. FLUOXETINE [Suspect]
     Indication: ANXIETY
     Dosage: 20MG, ORAL
     Route: 048
     Dates: start: 20101231, end: 20110127
  4. FLUOXETINE [Suspect]
     Indication: OBSESSIVE-COMPULSIVE DISORDER
     Dosage: 20MG, ORAL
     Route: 048
     Dates: start: 20101231, end: 20110127
  5. DICLOFENAC [Concomitant]
  6. OMEPRAZOLE [Concomitant]
  7. SERETIDE [Concomitant]
  8. AMOXICILLIN [Concomitant]

REACTIONS (5)
  - FEELING OF BODY TEMPERATURE CHANGE [None]
  - BODY TEMPERATURE FLUCTUATION [None]
  - DRUG INTERACTION [None]
  - VOMITING [None]
  - SEROTONIN SYNDROME [None]
